FAERS Safety Report 18457109 (Version 1)
Quarter: 2020Q4

REPORT INFORMATION
  Report Type: Spontaneous
  Country: US (occurrence: US)
  Receive Date: 20201102
  Receipt Date: 20201102
  Transmission Date: 20210114
  Serious: Yes (Hospitalization)
  Sender: FDA-Public Use
  Company Number: None

PATIENT
  Age: 61 Year
  Sex: Male

DRUGS (7)
  1. LISINOPRIL. [Concomitant]
     Active Substance: LISINOPRIL
     Dates: start: 20200810
  2. IPRATROPIU,/SOL ALBUTERL [Concomitant]
     Dates: start: 20201026
  3. NAPROXEN. [Concomitant]
     Active Substance: NAPROXEN
     Dates: start: 20200512
  4. PREDNISONE. [Concomitant]
     Active Substance: PREDNISONE
     Dates: start: 20200512
  5. OMEPRAZOLE. [Concomitant]
     Active Substance: OMEPRAZOLE
     Dates: start: 20200123
  6. ENBREL [Suspect]
     Active Substance: ETANERCEPT
     Indication: RHEUMATOID ARTHRITIS
     Dosage: ?          OTHER FREQUENCY:WEEKLY;?
     Route: 058
     Dates: start: 20200103
  7. CEFDINIE [Concomitant]
     Dates: start: 20201022

REACTIONS (3)
  - Hospitalisation [None]
  - Therapy interrupted [None]
  - Product temperature excursion issue [None]

NARRATIVE: CASE EVENT DATE: 20201016
